FAERS Safety Report 10196282 (Version 2)
Quarter: 2015Q1

REPORT INFORMATION
  Report Type: Spontaneous
  Country: US (occurrence: None)
  Receive Date: 20140522
  Receipt Date: 20150108
  Transmission Date: 20150720
  Serious: Yes (Other)
  Sender: FDA-Public Use
  Company Number: ADR-2014-00361

PATIENT
  Age: 72 Year
  Sex: Male

DRUGS (1)
  1. LIORESAL [Suspect]
     Active Substance: BACLOFEN
     Indication: MUSCLE SPASTICITY
     Dosage: 52.80 MCG/DAY

REACTIONS (4)
  - Seroma [None]
  - Abdominal distension [None]
  - Procedural complication [None]
  - Implant site extravasation [None]
